FAERS Safety Report 5856449-3 (Version None)
Quarter: 2008Q3

REPORT INFORMATION
  Report Type: 
  Country: None (occurrence: None)
  Receive Date: 20080825
  Receipt Date: 20080627
  Transmission Date: 20090109
  Serious: No
  Sender: FDA-Public Use
  Company Number: A0726361A

PATIENT
  Age: 77 Year
  Sex: Male

DRUGS (4)
  1. VERAMYST [Suspect]
     Indication: DRUG USE FOR UNKNOWN INDICATION
     Route: 045
     Dates: start: 20071106, end: 20071206
  2. ASTELIN [Concomitant]
     Route: 045
     Dates: start: 20040607
  3. PEPCID [Concomitant]
     Dosage: 40MG PER DAY
     Route: 048
     Dates: start: 20061106
  4. NEXIUM [Concomitant]
     Dosage: 40MG TWICE PER DAY
     Route: 048
     Dates: start: 20061106

REACTIONS (1)
  - EPISTAXIS [None]
